FAERS Safety Report 6217218-8 (Version None)
Quarter: 2009Q2

REPORT INFORMATION
  Report Type: 
  Country: None (occurrence: None)
  Receive Date: 20090608
  Receipt Date: 20090527
  Transmission Date: 20091009
  Serious: Yes (Life-Threatening)
  Sender: FDA-Public Use
  Company Number: BR-PFIZER INC-2009220171

PATIENT
  Age: 26 Year

DRUGS (2)
  1. DEPO-PROVERA [Suspect]
     Indication: CONTRACEPTION
     Dosage: 150 MG, EVERY 3 MONTHS
     Dates: start: 20020301
  2. ESTRADIOL VALERATE/NORETHISTERONE ENANTATE/ [Suspect]
     Indication: CONTRACEPTION
     Dosage: EVERY 30 DAYS
     Route: 030
     Dates: start: 20030311

REACTIONS (4)
  - DRUG INEFFECTIVE [None]
  - INAPPROPRIATE SCHEDULE OF DRUG ADMINISTRATION [None]
  - TOXOPLASMOSIS [None]
  - UNINTENDED PREGNANCY [None]
